FAERS Safety Report 5272822-9 (Version None)
Quarter: 2007Q1

REPORT INFORMATION
  Report Type: 
  Country: None (occurrence: None)
  Receive Date: 20061219
  Receipt Date: 20060925
  Transmission Date: 20070707
  Serious: Yes (Hospitalization, Other)
  Sender: FDA-Public Use
  Company Number: US-JNJFOC-20060805137

PATIENT
  Age: 42 Year
  Sex: Female
  Weight: 93.4 kg

DRUGS (3)
  1. ORTHO EVRA [Suspect]
     Indication: DYSFUNCTIONAL UTERINE BLEEDING
     Dates: start: 20021115, end: 20030423
  2. ADVAIR (SERETIDE MITE) [Concomitant]
  3. RHINOCORT [Concomitant]

REACTIONS (2)
  - DEEP VEIN THROMBOSIS [None]
  - PULMONARY EMBOLISM [None]
